FAERS Safety Report 4759499-3 (Version None)
Quarter: 2005Q3

REPORT INFORMATION
  Report Type: 
  Country: None (occurrence: None)
  Receive Date: 20050831
  Receipt Date: 20050823
  Transmission Date: 20060218
  Serious: Yes (Hospitalization, Disabling)
  Sender: FDA-Public Use
  Company Number: 384551

PATIENT
  Age: 15 Year
  Sex: Male
  Weight: 54.9 kg

DRUGS (1)
  1. ACCUTANE [Suspect]
     Indication: ACNE
     Dosage: 60 MG DAILY ORAL
     Route: 048
     Dates: start: 20011115, end: 20020416

REACTIONS (35)
  - ANAEMIA [None]
  - ARTHRALGIA [None]
  - ASTHENIA [None]
  - BACK PAIN [None]
  - BLOOD GLUCOSE INCREASED [None]
  - BLOOD POTASSIUM INCREASED [None]
  - BONE CYST [None]
  - BONE LESION [None]
  - COLITIS [None]
  - COLITIS ULCERATIVE [None]
  - CROHN'S DISEASE [None]
  - DEHYDRATION [None]
  - DIZZINESS [None]
  - DRY EYE [None]
  - DRY SKIN [None]
  - DYSURIA [None]
  - FATIGUE [None]
  - GASTROINTESTINAL DISORDER [None]
  - HAEMORRHOIDS [None]
  - INFECTION [None]
  - INFLAMMATORY BOWEL DISEASE [None]
  - INTESTINAL HAEMORRHAGE [None]
  - LIP DRY [None]
  - MALNUTRITION [None]
  - METATARSALGIA [None]
  - MOUTH ULCERATION [None]
  - NEUTROPHIL COUNT INCREASED [None]
  - PHOTOSENSITIVITY REACTION [None]
  - PLATELET COUNT INCREASED [None]
  - RASH [None]
  - RECTAL HAEMORRHAGE [None]
  - TEMPERATURE INTOLERANCE [None]
  - TENDONITIS [None]
  - WEIGHT DECREASED [None]
  - WHITE BLOOD CELL COUNT INCREASED [None]
